FAERS Safety Report 25254287 (Version 1)
Quarter: 2025Q2

REPORT INFORMATION
  Report Type: Report from Study
  Country: IT (occurrence: IT)
  Receive Date: 20250430
  Receipt Date: 20250430
  Transmission Date: 20250716
  Serious: Yes (Hospitalization, Other)
  Sender: UCB
  Company Number: IT-UCBSA-2025024605

PATIENT

DRUGS (1)
  1. BIMEKIZUMAB [Suspect]
     Active Substance: BIMEKIZUMAB
     Indication: Psoriatic arthropathy

REACTIONS (10)
  - Urosepsis [Recovered/Resolved]
  - Pulmonary sepsis [Recovered/Resolved]
  - Oral candidiasis [Unknown]
  - Skin candida [Unknown]
  - Eczema [Unknown]
  - Diarrhoea [Unknown]
  - Urticaria [Unknown]
  - Aphthous ulcer [Unknown]
  - Hepatic enzyme increased [Unknown]
  - Drug ineffective [Unknown]
